FAERS Safety Report 9786192 (Version 1)
Quarter: 2013Q4

REPORT INFORMATION
  Report Type: Spontaneous
  Country: ES (occurrence: ES)
  Receive Date: 20131227
  Receipt Date: 20131227
  Transmission Date: 20140711
  Serious: Yes (Other)
  Sender: FDA-Public Use
  Company Number: ES-BRISTOL-MYERS SQUIBB COMPANY-19928159

PATIENT
  Sex: 0

DRUGS (1)
  1. ORENCIA [Suspect]
     Route: 042

REACTIONS (2)
  - Pancytopenia [Unknown]
  - Herpes zoster [Unknown]
